FAERS Safety Report 4767700-5 (Version None)
Quarter: 2005Q3

REPORT INFORMATION
  Report Type: 
  Country: None (occurrence: None)
  Receive Date: 20050912
  Receipt Date: 20050908
  Transmission Date: 20060218
  Serious: Yes (Hospitalization)
  Sender: FDA-Public Use
  Company Number: DE-2005-017896

PATIENT
  Sex: Female

DRUGS (1)
  1. MIRENA [Suspect]
     Indication: CONTRACEPTION
     Dosage: 20 ?G/DAY, CONT, INTRA-UTERINE
     Route: 015
     Dates: start: 20050701, end: 20050829

REACTIONS (7)
  - HYPERTROPHY [None]
  - INTRA-UTERINE CONTRACEPTIVE DEVICE EXPELLED [None]
  - MENOMETRORRHAGIA [None]
  - PAIN [None]
  - PYREXIA [None]
  - UTERINE LEIOMYOMA [None]
  - VAGINAL DISORDER [None]
